FAERS Safety Report 12841531 (Version 2)
Quarter: 2016Q4

REPORT INFORMATION
  Report Type: Report from Study
  Country: CA (occurrence: CA)
  Receive Date: 20161012
  Receipt Date: 20161018
  Transmission Date: 20170207
  Serious: Yes (Other)
  Sender: FDA-Public Use
  Company Number: CA-JNJFOC-20160918574

PATIENT
  Age: 30 Year
  Sex: Female
  Weight: 92.99 kg

DRUGS (2)
  1. REMICADE [Suspect]
     Active Substance: INFLIXIMAB
     Indication: COLITIS ULCERATIVE
     Route: 042
     Dates: start: 20110627
  2. REMICADE [Suspect]
     Active Substance: INFLIXIMAB
     Indication: COLITIS ULCERATIVE
     Route: 042
     Dates: start: 20161004

REACTIONS (9)
  - Lower respiratory tract infection [Unknown]
  - Product use issue [Unknown]
  - General physical health deterioration [Recovering/Resolving]
  - Arthralgia [Unknown]
  - Off label use [Unknown]
  - Frequent bowel movements [Recovering/Resolving]
  - Haematochezia [Recovering/Resolving]
  - Sinus disorder [Unknown]
  - Cough [Unknown]

NARRATIVE: CASE EVENT DATE: 20110627
